FAERS Safety Report 15471196 (Version 1)
Quarter: 2018Q4

REPORT INFORMATION
  Report Type: Spontaneous
  Country: US (occurrence: US)
  Receive Date: 20181006
  Receipt Date: 20181006
  Transmission Date: 20190205
  Serious: No
  Sender: FDA-Public Use
  Company Number: US-JNJFOC-20180920628

PATIENT
  Age: 5 Year
  Sex: Male

DRUGS (2)
  1. CHILDRENS TYLENOL [Suspect]
     Active Substance: ACETAMINOPHEN
     Indication: PYREXIA
     Dosage: DOSE: 320 MG, DATE OF LAST DOSE: 15-SEP-2018
     Route: 048
     Dates: start: 20180915
  2. CHILDRENS TYLENOL [Suspect]
     Active Substance: ACETAMINOPHEN
     Indication: HEADACHE
     Dosage: DOSE: 320 MG, DATE OF LAST DOSE: 15-SEP-2018
     Route: 048
     Dates: start: 20180915

REACTIONS (4)
  - Visual impairment [Recovered/Resolved]
  - Incorrect dose administered [Unknown]
  - Anxiety [Recovered/Resolved]
  - Confusional state [Recovered/Resolved]

NARRATIVE: CASE EVENT DATE: 20180915
